FAERS Safety Report 17518261 (Version 1)
Quarter: 2020Q1

REPORT INFORMATION
  Report Type: Spontaneous
  Country: US (occurrence: US)
  Receive Date: 20200309
  Receipt Date: 20200309
  Transmission Date: 20200409
  Serious: Yes (Other)
  Sender: FDA-Public Use
  Company Number: US-BAYER-2020-041266

PATIENT
  Age: 39 Year
  Sex: Female

DRUGS (1)
  1. MIRENA [Suspect]
     Active Substance: LEVONORGESTREL
     Indication: CONTRACEPTION
     Dosage: 20?G PER DAY, CONT
     Route: 015
     Dates: start: 20200107, end: 20200304

REACTIONS (6)
  - Migraine [Recovered/Resolved]
  - Mood altered [Recovering/Resolving]
  - Genital haemorrhage [Recovered/Resolved]
  - Acne [Recovering/Resolving]
  - Weight increased [Recovering/Resolving]
  - Pain in extremity [Recovering/Resolving]

NARRATIVE: CASE EVENT DATE: 20200107
